FAERS Safety Report 6131735-0 (Version None)
Quarter: 2009Q1

REPORT INFORMATION
  Report Type: 
  Country: None (occurrence: None)
  Receive Date: 20090325
  Receipt Date: 20090311
  Transmission Date: 20090719
  Serious: Yes (Other)
  Sender: FDA-Public Use
  Company Number: PHHY2009BR09618

PATIENT
  Age: 36 Year
  Sex: Male

DRUGS (4)
  1. CYCLOSPORINE [Suspect]
     Indication: RENAL TRANSPLANT
     Dosage: UNK
  2. BASILIXIMAB [Suspect]
     Indication: RENAL TRANSPLANT
     Dosage: UNK
     Dates: start: 20070701
  3. MYCOPHENOLATE SODIUM [Suspect]
     Indication: RENAL TRANSPLANT
     Dosage: UNK
  4. STEROIDS NOS [Concomitant]
     Indication: RENAL TRANSPLANT
     Dosage: UNK

REACTIONS (8)
  - AZOTAEMIA [None]
  - COMPLICATIONS OF TRANSPLANTED KIDNEY [None]
  - HYPERPHOSPHATAEMIA [None]
  - KIDNEY TRANSPLANT REJECTION [None]
  - NEPHROCALCINOSIS [None]
  - NEPHROPATHY [None]
  - OLIGURIA [None]
  - RENAL TUBULAR NECROSIS [None]
